FAERS Safety Report 4611157-1 (Version None)
Quarter: 2005Q1

REPORT INFORMATION
  Report Type: 
  Country: None (occurrence: None)
  Receive Date: 20050317
  Receipt Date: 20050307
  Transmission Date: 20050727
  Serious: Yes (Other)
  Sender: FDA-Public Use
  Company Number: JP-JNJFOC-20041200939

PATIENT
  Sex: Female

DRUGS (6)
  1. RISPERDAL [Suspect]
     Route: 049
  2. RISPERDAL [Suspect]
     Indication: SCHIZOPHRENIA
     Route: 049
  3. ATORVASTATIN CALCIUM [Interacting]
  4. FLUNITRAZEPAM [Concomitant]
     Indication: SCHIZOPHRENIA
     Route: 049
  5. SULPIRIDE [Concomitant]
     Indication: SCHIZOPHRENIA
     Route: 049
  6. CHINESE MEDICINES [Concomitant]

REACTIONS (10)
  - CATATONIA [None]
  - CHEST PAIN [None]
  - COGWHEEL RIGIDITY [None]
  - DRUG INTERACTION [None]
  - HALLUCINATION [None]
  - INCOHERENT [None]
  - POLLAKIURIA [None]
  - RHABDOMYOLYSIS [None]
  - SYNCOPE [None]
  - TREMOR [None]
